FAERS Safety Report 8483646-3 (Version None)
Quarter: 2012Q3

REPORT INFORMATION
  Report Type: 
  Country: None (occurrence: None)
  Receive Date: 20120702
  Receipt Date: 20120619
  Transmission Date: 20120928
  Serious: Yes (Life-Threatening, Hospitalization)
  Sender: FDA-Public Use
  Company Number: PT-MYLANLABS-2012S1012595

PATIENT
  Age: 37 Year
  Sex: Female

DRUGS (6)
  1. LORAZEPAM [Concomitant]
     Indication: BIPOLAR I DISORDER
     Dosage: 1MG ONCE/DAY PLUS 2.5MG BEFORE BEDTIME
     Route: 065
  2. BIPERIDEN HYDROCHLORIDE TAB [Concomitant]
     Indication: BIPOLAR I DISORDER
     Route: 065
  3. VALPROATE SODIUM [Suspect]
     Indication: BIPOLAR I DISORDER
     Dosage: THEN INCREASED TO 500MG TWICE/DAY 3D LATER
     Route: 065
  4. VALPROATE SODIUM [Interacting]
     Route: 065
  5. TRAZODONE HCL [Concomitant]
     Indication: BIPOLAR I DISORDER
     Route: 065
  6. RISPERIDONE [Interacting]
     Indication: BIPOLAR I DISORDER
     Route: 065

REACTIONS (2)
  - DRUG INTERACTION [None]
  - HYPERAMMONAEMIC ENCEPHALOPATHY [None]
